FAERS Safety Report 8615172-2 (Version None)
Quarter: 2012Q3

REPORT INFORMATION
  Report Type: 
  Country: None (occurrence: None)
  Receive Date: 20120823
  Receipt Date: 20120821
  Transmission Date: 20120928
  Serious: Yes (Hospitalization)
  Sender: FDA-Public Use
  Company Number: US-PFIZER INC-2012097271

PATIENT
  Age: 50 Year
  Sex: Male
  Weight: 99.77 kg

DRUGS (6)
  1. PROTONIX [Suspect]
     Indication: HIATUS HERNIA
     Dosage: 40 MG, 3X/DAY
  2. DILTIAZEM [Concomitant]
     Indication: HYPERTENSION
     Dosage: 240 MG, DAILY
  3. VIAGRA [Suspect]
     Indication: ERECTILE DYSFUNCTION
     Dosage: 100 MG, AS NEEDED
     Route: 048
  4. NEURONTIN [Suspect]
     Indication: CHEST PAIN
     Dosage: 300 MG, 6 IN 1 D
  5. PROTONIX [Suspect]
     Indication: GASTROOESOPHAGEAL REFLUX DISEASE
  6. NEURONTIN [Suspect]
     Indication: NERVE INJURY

REACTIONS (2)
  - NERVE INJURY [None]
  - CHEST DISCOMFORT [None]
